FAERS Safety Report 14849151 (Version 2)
Quarter: 2018Q2

REPORT INFORMATION
  Report Type: Spontaneous
  Country: US (occurrence: US)
  Receive Date: 20180504
  Receipt Date: 20180608
  Transmission Date: 20180711
  Serious: Yes (Disabling, Other)
  Sender: FDA-Public Use
  Company Number: US-REGENERON PHARMACEUTICALS, INC.-2018-22122

PATIENT

DRUGS (4)
  1. EYLEA [Suspect]
     Active Substance: AFLIBERCEPT
     Dosage: 0.5 ML, EVERY 5-6 WEEKS, OU
     Dates: start: 20180317, end: 20180317
  2. EYLEA [Suspect]
     Active Substance: AFLIBERCEPT
     Indication: NEOVASCULAR AGE-RELATED MACULAR DEGENERATION
     Dosage: 0.5 ML, EVERY 5-6 WEEKS, OU
     Dates: start: 20160921, end: 20180420
  3. ASPIRIN. [Concomitant]
     Active Substance: ASPIRIN
     Indication: PRODUCT USED FOR UNKNOWN INDICATION
     Dosage: 81 MG, UNK
     Route: 048
  4. EYLEA [Suspect]
     Active Substance: AFLIBERCEPT
     Dosage: 0.5 ML, EVERY 5-6 WEEKS, LAST DOSE PRIOR TO EVENT
     Dates: start: 20180418, end: 20180418

REACTIONS (8)
  - Eye haemorrhage [Recovered/Resolved]
  - Anterior chamber cell [Recovered/Resolved]
  - Iris vascular disorder [Recovered/Resolved]
  - Blindness [Unknown]
  - Ocular hyperaemia [Recovered/Resolved]
  - Vitrectomy [Unknown]
  - Conjunctival oedema [Recovered/Resolved]
  - Eye pain [Recovered/Resolved]

NARRATIVE: CASE EVENT DATE: 20180420
